FAERS Safety Report 7239826 (Version 2)
Quarter: 2014Q2

REPORT INFORMATION
  Report Type: Spontaneous
  Country: US (occurrence: None)
  Receive Date: 20091222
  Receipt Date: 20140415
  Transmission Date: 20141212
  Serious: Yes (Other)
  Sender: FDA-Public Use
  Company Number: AUR-APL-2009-01514

PATIENT
  Sex: 0

DRUGS (6)
  1. STAVUDINE [Suspect]
     Indication: ACUTE HIV INFECTION
  2. LAMIVUDINE [Suspect]
     Indication: ACUTE HIV INFECTION
  3. ABACAVIR [Suspect]
     Indication: ACUTE HIV INFECTION
  4. NELFINAVIR [Suspect]
     Indication: ACUTE HIV INFECTION
  5. RITONAVIR [Suspect]
     Indication: ACUTE HIV INFECTION
  6. AMPRENAVIR [Suspect]
     Indication: ACUTE HIV INFECTION

REACTIONS (3)
  - Chest pain [None]
  - Drug intolerance [None]
  - Infection [None]
